FAERS Safety Report 6558698-8 (Version None)
Quarter: 2010Q1

REPORT INFORMATION
  Report Type: 
  Country: None (occurrence: None)
  Receive Date: 20100129
  Receipt Date: 20100118
  Transmission Date: 20100710
  Serious: Yes (Death, Life-Threatening, Hospitalization)
  Sender: FDA-Public Use
  Company Number: FR-PFIZER INC-2009247116

PATIENT
  Age: 61 Year
  Sex: Male

DRUGS (2)
  1. SUNITINIB MALATE [Suspect]
     Indication: RENAL CANCER METASTATIC
     Dosage: 50 MG, 1X/DAY
     Route: 048
     Dates: start: 20090606, end: 20090625
  2. SUNITINIB MALATE [Suspect]
     Dosage: UNK
     Dates: start: 20091019, end: 20091021

REACTIONS (1)
  - ORGANISING PNEUMONIA [None]
